FAERS Safety Report 19129522 (Version 4)
Quarter: 2024Q4

REPORT INFORMATION
  Report Type: Spontaneous
  Country: US (occurrence: US)
  Receive Date: 20210413
  Receipt Date: 20241107
  Transmission Date: 20250114
  Serious: No
  Sender: PFIZER
  Company Number: US-PFIZER INC-2020463333

PATIENT
  Age: 66 Year
  Sex: Male

DRUGS (4)
  1. XELJANZ [Suspect]
     Active Substance: TOFACITINIB CITRATE
     Indication: Spondyloarthropathy
     Dosage: 5 MG, DAILY
     Route: 048
     Dates: start: 201908
  2. XELJANZ [Suspect]
     Active Substance: TOFACITINIB CITRATE
     Indication: Rheumatoid arthritis
     Dosage: 5 MG, 2X/DAY
  3. XELJANZ [Suspect]
     Active Substance: TOFACITINIB CITRATE
     Indication: Seronegative arthritis
     Dosage: 5 MG, DAILY
     Route: 048
  4. XELJANZ [Suspect]
     Active Substance: TOFACITINIB CITRATE
     Dosage: 1 TAB PO BID
     Route: 048

REACTIONS (9)
  - Greater trochanteric pain syndrome [Unknown]
  - Arthralgia [Unknown]
  - Osteoarthritis [Unknown]
  - Cartilage injury [Unknown]
  - Joint effusion [Unknown]
  - Synovitis [Unknown]
  - Tenosynovitis [Unknown]
  - Bursitis [Unknown]
  - Drug effect less than expected [Unknown]

NARRATIVE: CASE EVENT DATE: 20200101
